FAERS Safety Report 20803224 (Version 3)
Quarter: 2022Q2

REPORT INFORMATION
  Report Type: Spontaneous
  Country: US (occurrence: US)
  Receive Date: 20220509
  Receipt Date: 20220628
  Transmission Date: 20220721
  Serious: Yes (Other)
  Sender: FDA-Public Use
  Company Number: US-INCYTE CORPORATION-2022IN004216

PATIENT

DRUGS (5)
  1. JAKAFI [Suspect]
     Active Substance: RUXOLITINIB
     Indication: Myelodysplastic syndrome
     Dosage: 10 MILLIGRAM, BID
     Route: 048
     Dates: start: 202201
  2. JAKAFI [Suspect]
     Active Substance: RUXOLITINIB
     Indication: Prostate cancer
     Dosage: 10 MILLIGRAM, BID
     Route: 048
     Dates: start: 20220113
  3. JAKAFI [Suspect]
     Active Substance: RUXOLITINIB
     Indication: Pancytopenia
     Dosage: 10 MILLIGRAM
     Route: 048
     Dates: start: 20220224
  4. JAKAFI [Suspect]
     Active Substance: RUXOLITINIB
     Indication: Prophylaxis
  5. JAKAFI [Suspect]
     Active Substance: RUXOLITINIB
     Indication: Chronic kidney disease

REACTIONS (6)
  - Prostate cancer [Unknown]
  - Pneumonia [Unknown]
  - Disease progression [Unknown]
  - Dizziness [Unknown]
  - Platelet count decreased [Unknown]
  - Off label use [Unknown]

NARRATIVE: CASE EVENT DATE: 20220101
